FAERS Safety Report 6593275-4 (Version None)
Quarter: 2010Q1

REPORT INFORMATION
  Report Type: 
  Country: None (occurrence: None)
  Receive Date: 20100222
  Receipt Date: 20100210
  Transmission Date: 20100710
  Serious: Yes (Death)
  Sender: FDA-Public Use
  Company Number: IT-BAYER-200823701GPV

PATIENT

DRUGS (4)
  1. FLUDARABINE [Suspect]
     Indication: B-CELL SMALL LYMPHOCYTIC LYMPHOMA
     Dosage: SIX MONTHLY COURSES OF 25 MG/M2 FOR 5 DAYS/MONTH
     Route: 042
  2. RITUXIMAB [Suspect]
     Indication: B-CELL SMALL LYMPHOCYTIC LYMPHOMA
     Dosage: FOUR WEEKLY DOSES OF RITUXIMAB (375 MG/M2) AFTER THE 6 MONTHLY COURSES OF FLUDARABINE
     Route: 065
  3. RITUXIMAB [Suspect]
     Dosage: CONSOLIDATION THERAPY IN 35 PATIENTS
     Route: 065
  4. RITUXIMAB [Suspect]
     Dosage: MAINTENANCE THERAPY IN 35 PATIENTS
     Route: 065

REACTIONS (1)
  - HEPATITIS B [None]
